FAERS Safety Report 8219741-3 (Version None)
Quarter: 2012Q1

REPORT INFORMATION
  Report Type: 
  Country: None (occurrence: None)
  Receive Date: 20120319
  Receipt Date: 20120315
  Transmission Date: 20120608
  Serious: Yes (Life-Threatening, Hospitalization, Other)
  Sender: FDA-Public Use
  Company Number: US-ASTRAZENECA-2011SE55879

PATIENT
  Age: 47 Year
  Sex: Male
  Weight: 72.6 kg

DRUGS (23)
  1. SEROQUEL [Suspect]
     Indication: BIPOLAR DISORDER
     Route: 048
  2. SEROQUEL [Suspect]
     Route: 048
     Dates: start: 20110510, end: 20110708
  3. AMBIEN [Suspect]
     Route: 048
     Dates: start: 20091006, end: 20110708
  4. SEROQUEL [Suspect]
     Route: 048
     Dates: start: 20110510, end: 20110708
  5. SEROQUEL [Suspect]
     Route: 048
     Dates: start: 20110608, end: 20110708
  6. SEROQUEL [Suspect]
     Route: 048
     Dates: start: 20110608, end: 20110708
  7. XANAX [Suspect]
     Route: 065
  8. KLONOPIN [Suspect]
     Route: 065
  9. TRAZODONE HCL [Concomitant]
     Route: 048
     Dates: start: 20110501, end: 20110708
  10. SEROQUEL [Suspect]
     Indication: ATTENTION DEFICIT/HYPERACTIVITY DISORDER
     Route: 048
  11. CYMBALTA [Concomitant]
     Route: 048
     Dates: start: 20091027, end: 20110708
  12. SEROQUEL [Suspect]
     Route: 048
  13. SEROQUEL [Suspect]
     Route: 048
     Dates: start: 20110510, end: 20110708
  14. IBUPROFEN (ADVIL) [Concomitant]
  15. SEROQUEL [Suspect]
     Indication: POST-TRAUMATIC STRESS DISORDER
     Route: 048
  16. SEROQUEL [Suspect]
     Route: 048
  17. SEROQUEL [Suspect]
     Route: 048
  18. SEROQUEL [Suspect]
     Route: 048
  19. SEROQUEL [Suspect]
     Route: 048
     Dates: start: 20110608, end: 20110708
  20. MORPHINE [Suspect]
     Route: 065
  21. SEROQUEL [Suspect]
     Route: 048
  22. SEROQUEL [Suspect]
     Route: 048
  23. OXYCODONE HCL [Concomitant]

REACTIONS (13)
  - INSOMNIA [None]
  - DECREASED APPETITE [None]
  - ADVERSE EVENT [None]
  - HEPATITIS VIRAL [None]
  - WRONG TECHNIQUE IN DRUG USAGE PROCESS [None]
  - SOMNOLENCE [None]
  - IRRITABILITY [None]
  - SUICIDE ATTEMPT [None]
  - INCORRECT DOSE ADMINISTERED [None]
  - DRUG DOSE OMISSION [None]
  - APHAGIA [None]
  - FOOT FRACTURE [None]
  - DRUG DEPENDENCE [None]
